FAERS Safety Report 23996782 (Version 14)
Quarter: 2025Q4

REPORT INFORMATION
  Report Type: Report from Study
  Country: EU (occurrence: EU)
  Receive Date: 20240620
  Receipt Date: 20251008
  Transmission Date: 20260117
  Serious: Yes (Other)
  Sender: JOHNSON AND JOHNSON
  Company Number: EU-JNJFOC-20240316933

PATIENT
  Age: 32 Year
  Sex: Male

DRUGS (2)
  1. SPRAVATO [Suspect]
     Active Substance: ESKETAMINE
     Indication: Depression
     Dosage: OTHER THERAPY DATES: 07-MAR-2024 11-MAR-2024
     Route: 045
     Dates: start: 20240304, end: 20240314
  2. SPRAVATO [Suspect]
     Active Substance: ESKETAMINE
     Dosage: 3 DEVICES; OTHER THERAPY DATES: 18-MAR-2024,  22-MAR-2024, 25-MAR-2024,27-MAR-2024, 04-APR-2024, 12-
     Route: 045
     Dates: start: 20240318, end: 20250707

REACTIONS (25)
  - Hallucination, visual [Recovered/Resolved]
  - Dizziness [Recovered/Resolved]
  - Nausea [Recovered/Resolved]
  - Depersonalisation/derealisation disorder [Recovered/Resolved]
  - Feeling of body temperature change [Recovered/Resolved]
  - Throat irritation [Recovered/Resolved]
  - Vomiting [Recovered/Resolved]
  - Hypertension [Recovered/Resolved]
  - Vertigo [Recovered/Resolved]
  - Hiccups [Recovered/Resolved]
  - Ageusia [Recovered/Resolved]
  - Anosmia [Recovered/Resolved]
  - Headache [Recovered/Resolved]
  - Tinnitus [Recovered/Resolved]
  - Asthma [Recovered/Resolved]
  - Hyperacusis [Recovered/Resolved]
  - Auditory disorder [Recovered/Resolved]
  - Gastrooesophageal reflux disease [Not Recovered/Not Resolved]
  - Discomfort [Recovered/Resolved]
  - Cognitive disorder [Recovered/Resolved]
  - Sleep disorder [Not Recovered/Not Resolved]
  - Diarrhoea [Recovered/Resolved]
  - Dissociation [Recovered/Resolved]
  - Diplopia [Recovered/Resolved]
  - Delusional perception [Recovered/Resolved]

NARRATIVE: CASE EVENT DATE: 20240304
